FAERS Safety Report 5735954-4 (Version None)
Quarter: 2008Q2

REPORT INFORMATION
  Report Type: 
  Country: None (occurrence: None)
  Receive Date: 20080509
  Receipt Date: 20080501
  Transmission Date: 20081010
  Serious: Yes (Other)
  Sender: FDA-Public Use
  Company Number: 2008011506

PATIENT
  Age: 80 Year
  Sex: Female
  Weight: 77.1115 kg

DRUGS (12)
  1. LISTERINE VANILLA MINT (MENTHOL, METHYL SALICYLATE, EUCALYPTOL, THYMOL [Suspect]
     Indication: BREATH ODOUR
     Dosage: 10CC 1 TIME A DAY, ORAL
     Route: 048
     Dates: start: 20080430
  2. FOSMAX (ALENDRONATE SODIUM) [Concomitant]
  3. SYNTHROID [Concomitant]
  4. PROTONIX [Concomitant]
  5. LASIX [Concomitant]
  6. VASOTEC [Concomitant]
  7. INDERAL [Concomitant]
  8. CLARITIN [Concomitant]
  9. MULTIVITAMIN [Concomitant]
  10. OSCAL 500-D (CALCIUM, COLECALCIFEROL) [Concomitant]
  11. PERIDEX (CHLORHEXIDINE GLUCONATE) [Concomitant]
  12. ACETYLSALICYLIC ACID SRT [Concomitant]

REACTIONS (2)
  - GLOSSODYNIA [None]
  - ORAL DISCOMFORT [None]
